FAERS Safety Report 24384684 (Version 3)
Quarter: 2024Q4

REPORT INFORMATION
  Report Type: Report from Study
  Country: US (occurrence: US)
  Receive Date: 20241001
  Receipt Date: 20241010
  Transmission Date: 20250115
  Serious: No
  Sender: SANDOZ
  Company Number: US-SANDOZ-SDZ2024US084184

PATIENT
  Age: 14 Year

DRUGS (4)
  1. OMNITROPE [Suspect]
     Active Substance: SOMATROPIN
     Dosage: 1.4 MG, QD
     Route: 058
     Dates: start: 20240918
  2. OMNITROPE [Suspect]
     Active Substance: SOMATROPIN
     Dosage: 1.4 MG, QD
     Route: 058
     Dates: start: 20240918
  3. OMNITROPE [Suspect]
     Active Substance: SOMATROPIN
     Indication: Hypopituitarism
     Dosage: (N/A N/A 2 DOSE EVERY N/A N/A) QD
     Route: 065
     Dates: start: 20240930
  4. OMNITROPE [Suspect]
     Active Substance: SOMATROPIN
     Indication: Hypopituitarism
     Dosage: (N/A N/A 2 DOSE EVERY N/A N/A) QD
     Route: 065
     Dates: start: 20240930

REACTIONS (3)
  - Injection site bruising [Unknown]
  - Injection site bruising [Unknown]
  - Skin lesion [Unknown]

NARRATIVE: CASE EVENT DATE: 20240918
